FAERS Safety Report 9842573 (Version 2)
Quarter: 2015Q3

REPORT INFORMATION
  Report Type: Spontaneous
  Country: US (occurrence: US)
  Receive Date: 20140124
  Receipt Date: 20150730
  Transmission Date: 20151125
  Serious: No
  Sender: FDA-Public Use
  Company Number: US-GILEAD-2011-0048389

PATIENT
  Age: 69 Year
  Sex: Male

DRUGS (7)
  1. PLAVIX [Concomitant]
     Active Substance: CLOPIDOGREL BISULFATE
  2. ZANTAC [Concomitant]
     Active Substance: RANITIDINE HYDROCHLORIDE
  3. XANAX [Concomitant]
     Active Substance: ALPRAZOLAM
  4. LOTREL [Concomitant]
     Active Substance: AMLODIPINE BESYLATE\BENAZEPRIL HYDROCHLORIDE
  5. RANEXA [Suspect]
     Active Substance: RANOLAZINE
     Indication: PRODUCT USED FOR UNKNOWN INDICATION
     Dosage: 500 MG, BID
  6. COREG [Concomitant]
     Active Substance: CARVEDILOL
  7. ASA [Concomitant]
     Active Substance: ASPIRIN

REACTIONS (4)
  - Fatigue [Unknown]
  - Yawning [Unknown]
  - Palpitations [Unknown]
  - Constipation [Unknown]

NARRATIVE: CASE EVENT DATE: 20111219
